FAERS Safety Report 17025228 (Version 1)
Quarter: 2019Q4

REPORT INFORMATION
  Report Type: Spontaneous
  Country: US (occurrence: US)
  Receive Date: 20191009
  Receipt Date: 20191009
  Transmission Date: 20200122
  Serious: No
  Sender: FDA-Public Use
  Company Number: None

PATIENT
  Age: 75 Year
  Sex: Female

DRUGS (1)
  1. IBRANCE [Suspect]
     Active Substance: PALBOCICLIB
     Indication: BREAST CANCER
     Dosage: ?          OTHER FREQUENCY:DAY FOR 21 DAYS/CYCLE?
     Route: 048
     Dates: start: 20190905, end: 20191002

REACTIONS (6)
  - Diarrhoea [None]
  - Fatigue [None]
  - Metastases to bone [None]
  - Red blood cell count decreased [None]
  - White blood cell count decreased [None]
  - Dry skin [None]

NARRATIVE: CASE EVENT DATE: 20190910
